FAERS Safety Report 10994627 (Version 2)
Quarter: 2015Q3

REPORT INFORMATION
  Report Type: Spontaneous
  Country: US (occurrence: US)
  Receive Date: 20150407
  Receipt Date: 20150701
  Transmission Date: 20151125
  Serious: No
  Sender: FDA-Public Use
  Company Number: US-009507513-1504USA002032

PATIENT
  Age: 27 Year
  Sex: Female
  Weight: 77.98 kg

DRUGS (3)
  1. NEXPLANON [Suspect]
     Active Substance: ETONOGESTREL
     Indication: CONTRACEPTION
     Dosage: ONE ROD ONCE
     Route: 059
     Dates: start: 20130327, end: 20150402
  2. NEXPLANON [Suspect]
     Active Substance: ETONOGESTREL
     Dosage: UNK
     Route: 059
     Dates: start: 2015
  3. ALBUTEROL. [Concomitant]
     Active Substance: ALBUTEROL

REACTIONS (2)
  - Pregnancy test false positive [Recovered/Resolved]
  - Pregnancy test false positive [Recovered/Resolved]

NARRATIVE: CASE EVENT DATE: 201503
